FAERS Safety Report 7841479-2 (Version None)
Quarter: 2011Q4

REPORT INFORMATION
  Report Type: 
  Country: None (occurrence: None)
  Receive Date: 20111025
  Receipt Date: 20111017
  Transmission Date: 20120403
  Serious: Yes (Hospitalization)
  Sender: FDA-Public Use
  Company Number: JP-JNJFOC-20110407625

PATIENT
  Sex: Male
  Weight: 57 kg

DRUGS (32)
  1. BUFFERIN [Suspect]
     Indication: PRODUCT USED FOR UNKNOWN INDICATION
     Route: 048
     Dates: start: 20100802, end: 20101118
  2. NEO VITACAIN [Concomitant]
     Route: 065
     Dates: start: 20100707, end: 20100707
  3. NEUROTROPIN [Concomitant]
     Route: 065
     Dates: start: 20100519, end: 20100519
  4. LOXONIN [Concomitant]
     Indication: PAIN
     Route: 048
  5. METHYCOBAL [Concomitant]
     Indication: PRODUCT USED FOR UNKNOWN INDICATION
     Route: 048
  6. RABEPRAZOLE SODIUM [Concomitant]
     Route: 048
     Dates: start: 20101118
  7. STICK ZENOL [Concomitant]
     Indication: PAIN
  8. TORSEMIDE [Concomitant]
     Indication: PRODUCT USED FOR UNKNOWN INDICATION
     Route: 048
  9. SENNOSIDE [Concomitant]
     Indication: PRODUCT USED FOR UNKNOWN INDICATION
     Route: 048
  10. PANTOSIN [Concomitant]
     Indication: PRODUCT USED FOR UNKNOWN INDICATION
     Route: 048
  11. NITROGLYCERIN [Concomitant]
     Indication: PRODUCT USED FOR UNKNOWN INDICATION
     Route: 060
     Dates: start: 20100802, end: 20100802
  12. FENTANYL-100 [Suspect]
     Indication: PAIN
     Dosage: PER 3 DAYS
     Route: 062
     Dates: start: 20100519
  13. NEO VITACAIN [Concomitant]
     Indication: PAIN
     Route: 065
     Dates: start: 20100804, end: 20100804
  14. NEO VITACAIN [Concomitant]
     Route: 065
     Dates: start: 20100721, end: 20100721
  15. SHAKUYAKUKANZOUTOU [Concomitant]
     Indication: PAIN
     Route: 048
  16. BESACOLIN [Concomitant]
     Indication: PRODUCT USED FOR UNKNOWN INDICATION
     Route: 048
  17. ISOSORBIDE DINITRATE [Concomitant]
     Indication: PRODUCT USED FOR UNKNOWN INDICATION
     Route: 061
     Dates: start: 20100802
  18. NEUROTROPIN [Concomitant]
     Route: 065
     Dates: start: 20100707, end: 20100707
  19. NEUROTROPIN [Concomitant]
     Route: 065
     Dates: start: 20100721, end: 20100721
  20. KAMAG G [Concomitant]
     Indication: PRODUCT USED FOR UNKNOWN INDICATION
     Route: 048
  21. NEO VITACAIN [Concomitant]
     Route: 065
     Dates: start: 20100616, end: 20100616
  22. INDOMETACIN [Concomitant]
     Indication: PAIN
     Route: 065
  23. CEROCRAL [Concomitant]
     Indication: PRODUCT USED FOR UNKNOWN INDICATION
     Route: 048
  24. NEUROTROPIN [Concomitant]
     Indication: PAIN
     Route: 065
     Dates: start: 20100616, end: 20100616
  25. DESYREL [Concomitant]
     Indication: PRODUCT USED FOR UNKNOWN INDICATION
     Route: 048
  26. SIGMART [Concomitant]
     Indication: PRODUCT USED FOR UNKNOWN INDICATION
     Route: 048
     Dates: start: 20100802, end: 20100804
  27. GASTROM [Concomitant]
     Route: 048
     Dates: start: 20101119, end: 20101201
  28. NEO VITACAIN [Concomitant]
     Route: 065
     Dates: start: 20100519, end: 20100519
  29. NEUROTROPIN [Concomitant]
     Route: 065
     Dates: start: 20100804, end: 20100804
  30. TIZANIDINE HCL [Concomitant]
     Indication: PAIN
     Route: 048
  31. URIEF [Concomitant]
     Indication: PRODUCT USED FOR UNKNOWN INDICATION
     Route: 048
  32. SIGMART [Concomitant]
     Route: 048
     Dates: start: 20100805

REACTIONS (3)
  - GASTRIC ULCER [None]
  - ANGINA PECTORIS [None]
  - CHEST DISCOMFORT [None]
